FAERS Safety Report 8520741-4 (Version None)
Quarter: 2012Q3

REPORT INFORMATION
  Report Type: 
  Country: None (occurrence: None)
  Receive Date: 20120719
  Receipt Date: 20120713
  Transmission Date: 20120928
  Serious: Yes (Hospitalization, Other)
  Sender: FDA-Public Use
  Company Number: US-BAYER-2012-045472

PATIENT
  Age: 25 Year
  Sex: Female
  Weight: 81 kg

DRUGS (1)
  1. MIRENA [Suspect]
     Indication: CONTRACEPTION
     Dosage: 20 MCG/24HR, CONT
     Route: 015
     Dates: start: 20081224, end: 20120507

REACTIONS (4)
  - LOOP ELECTROSURGICAL EXCISION PROCEDURE [None]
  - ABDOMINAL PAIN [None]
  - DEVICE COMPONENT ISSUE [None]
  - ECTOPIC PREGNANCY WITH INTRAUTERINE DEVICE [None]
